FAERS Safety Report 8934456 (Version 1)
Quarter: 2012Q4

REPORT INFORMATION
  Report Type: Report from Study
  Country: KZ (occurrence: KZ)
  Receive Date: 20121129
  Receipt Date: 20121129
  Transmission Date: 20130627
  Serious: Yes (Death)
  Sender: FDA-Public Use
  Company Number: KZ-B.I. PHARMACEUTICALS,INC./RIDGEFIELD-2012-AP-00784AP

PATIENT
  Age: 71 Year
  Sex: Male
  Weight: 60 kg

DRUGS (3)
  1. MIRAPEX [Suspect]
     Indication: PARKINSON^S DISEASE
     Dosage: 0.375 mg
     Route: 048
     Dates: start: 20120729, end: 20120907
  2. NACOM [Concomitant]
     Indication: PARKINSON^S DISEASE
     Dosage: 375 mg
     Route: 048
     Dates: end: 20120907
  3. ANTIHYPERTENSIVE DRUGS [Concomitant]
     Indication: HYPERTENSION
     Route: 048
     Dates: end: 20120907

REACTIONS (1)
  - Cardiac failure [Fatal]
